FAERS Safety Report 4602812-8 (Version None)
Quarter: 2005Q1

REPORT INFORMATION
  Report Type: 
  Country: None (occurrence: None)
  Receive Date: 20050307
  Receipt Date: 20050221
  Transmission Date: 20050727
  Serious: Yes (Hospitalization)
  Sender: FDA-Public Use
  Company Number: 2005028113

PATIENT
  Age: 10 Month
  Sex: Male
  Weight: 8.94 kg

DRUGS (3)
  1. PHENYTOIN SODIUM [Suspect]
     Indication: CONVULSION
     Dosage: 6.6 ML (3.3 ML, 2 IN 1 D), ORAL
     Route: 048
  2. GAVISCON [Concomitant]
  3. DIAZEPAM [Concomitant]

REACTIONS (5)
  - ANTICONVULSANT DRUG LEVEL DECREASED [None]
  - CONDITION AGGRAVATED [None]
  - CONVULSION [None]
  - DRUG INEFFECTIVE [None]
  - DRUG INTERACTION [None]
